FAERS Safety Report 4589358-0 (Version None)
Quarter: 2005Q1

REPORT INFORMATION
  Report Type: 
  Country: None (occurrence: None)
  Receive Date: 20050216
  Receipt Date: 20050203
  Transmission Date: 20050727
  Serious: Yes (Death, Hospitalization)
  Sender: FDA-Public Use
  Company Number: 2004-BP-06482BP

PATIENT
  Age: 73 Year
  Sex: Female

DRUGS (5)
  1. COMBIVENT [Suspect]
     Indication: DYSPNOEA
     Dosage: (SEE TEXT), IH
     Route: 055
  2. COMBIVENT [Suspect]
     Indication: OESOPHAGEAL CARCINOMA
     Dosage: (SEE TEXT), IH
     Route: 055
  3. COMBIVENT [Suspect]
     Indication: PNEUMONIA
     Dosage: (SEE TEXT), IH
     Route: 055
  4. NASAL OXYGEN (OXYGEN) [Concomitant]
  5. 5 % DEXTROSE + CHLORIDE 9% SODIUM INJECTION [Concomitant]

REACTIONS (6)
  - BLINDNESS [None]
  - CERUMEN IMPACTION [None]
  - COMA [None]
  - HYPERSENSITIVITY [None]
  - PNEUMONIA [None]
  - SCREAMING [None]
